FAERS Safety Report 6902574-5 (Version None)
Quarter: 2010Q3

REPORT INFORMATION
  Report Type: 
  Country: None (occurrence: None)
  Receive Date: 20100803
  Receipt Date: 20080529
  Transmission Date: 20110219
  Serious: Yes (Other)
  Sender: FDA-Public Use
  Company Number: US-PFIZER INC-2008046031

PATIENT
  Sex: Female
  Weight: 100.2 kg

DRUGS (8)
  1. LYRICA [Suspect]
     Indication: FIBROMYALGIA
     Route: 048
  2. NORTRIPTYLINE [Concomitant]
  3. ZYRTEC [Concomitant]
  4. CYMBALTA [Concomitant]
  5. PROZAC [Concomitant]
  6. MS CONTIN [Concomitant]
  7. MIRAPEX [Concomitant]
  8. BENADRYL [Concomitant]

REACTIONS (6)
  - ASTHMA [None]
  - BLOOD CHOLESTEROL INCREASED [None]
  - LOW DENSITY LIPOPROTEIN INCREASED [None]
  - OEDEMA PERIPHERAL [None]
  - WEIGHT DECREASED [None]
  - WEIGHT INCREASED [None]
